FAERS Safety Report 5015371-5 (Version None)
Quarter: 2006Q2

REPORT INFORMATION
  Report Type: 
  Country: None (occurrence: None)
  Receive Date: 20060530
  Receipt Date: 20060530
  Transmission Date: 20061013
  Serious: Yes (Hospitalization, Disabling, Other)
  Sender: FDA-Public Use
  Company Number: None

PATIENT
  Sex: Female
  Weight: 67.586 kg

DRUGS (1)
  1. TOPAMAX [Suspect]
     Indication: PAIN
     Dosage: 50 MG AT NIGHT PILLS
     Dates: start: 20051201, end: 20060401

REACTIONS (14)
  - BLINDNESS [None]
  - BURNING SENSATION [None]
  - CARDIAC DISORDER [None]
  - CORRECTIVE LENS USER [None]
  - COUGH [None]
  - DEPRESSION [None]
  - DRY EYE [None]
  - HYPOAESTHESIA [None]
  - PAIN [None]
  - PHARYNGOLARYNGEAL PAIN [None]
  - PRURITUS GENERALISED [None]
  - SINUS DISORDER [None]
  - VISION BLURRED [None]
  - VISUAL DISTURBANCE [None]
